FAERS Safety Report 6099364-5 (Version None)
Quarter: 2009Q1

REPORT INFORMATION
  Report Type: 
  Country: None (occurrence: None)
  Receive Date: 20090226
  Receipt Date: 20090226
  Transmission Date: 20090719
  Serious: Yes (Death)
  Sender: FDA-Public Use
  Company Number: None

PATIENT
  Age: 31 Year

DRUGS (2)
  1. VARENICLINE [Suspect]
     Indication: SMOKING CESSATION THERAPY
     Dates: start: 20090120
  2. ALPRAZOLAM [Suspect]
     Indication: ANXIETY
     Dosage: 0.75 MG BID PO
     Route: 048
     Dates: start: 20090213

REACTIONS (1)
  - COMPLETED SUICIDE [None]
